FAERS Safety Report 25064318 (Version 2)
Quarter: 2025Q2

REPORT INFORMATION
  Report Type: Spontaneous
  Country: GR (occurrence: GR)
  Receive Date: 20250311
  Receipt Date: 20250402
  Transmission Date: 20250717
  Serious: Yes (Death)
  Sender: BAYER
  Company Number: GR-BAYER-2025A030992

PATIENT
  Age: 42 Year
  Sex: Male
  Weight: 86 kg

DRUGS (5)
  1. GADOBUTROL [Suspect]
     Active Substance: GADOBUTROL
     Indication: Magnetic resonance imaging heart
     Route: 042
     Dates: start: 20250305, end: 20250305
  2. ENTRESTO [Concomitant]
     Active Substance: SACUBITRIL\VALSARTAN
  3. BISOPROLOL FUMARATE [Concomitant]
     Active Substance: BISOPROLOL FUMARATE
  4. JARDIANCE [Concomitant]
     Active Substance: EMPAGLIFLOZIN
  5. EPLERENONE [Concomitant]
     Active Substance: EPLERENONE

REACTIONS (3)
  - Nausea [Fatal]
  - Skin warm [Fatal]
  - Loss of consciousness [Fatal]

NARRATIVE: CASE EVENT DATE: 20250305
